FAERS Safety Report 9266932 (Version 2)
Quarter: 2013Q4

REPORT INFORMATION
  Report Type: Spontaneous
  Country: US (occurrence: US)
  Receive Date: 20130502
  Receipt Date: 20131002
  Transmission Date: 20140711
  Serious: No
  Sender: FDA-Public Use
  Company Number: US-009507513-1304USA016658

PATIENT
  Sex: Female

DRUGS (8)
  1. PEGINTRON [Suspect]
     Indication: ESSENTIAL THROMBOCYTHAEMIA
     Dosage: UNK, QW
     Dates: start: 201301
  2. RULIDE [Concomitant]
  3. SYNTHROID [Concomitant]
  4. ACYCLOVIR [Concomitant]
  5. ASPIRIN [Concomitant]
  6. CALCIUM (UNSPECIFIED) [Concomitant]
  7. MAGNESIUM (UNSPECIFIED) [Concomitant]
  8. STRONTIUM CITRATE [Concomitant]

REACTIONS (5)
  - Injection site erythema [Recovered/Resolved]
  - Erythema [Recovered/Resolved]
  - Injection site haemorrhage [Recovered/Resolved]
  - Product quality issue [Unknown]
  - Off label use [Unknown]
